FAERS Safety Report 11757868 (Version 1)
Quarter: 2015Q4

REPORT INFORMATION
  Report Type: Report from Study
  Country: US (occurrence: None)
  Receive Date: 20151117
  Receipt Date: 20151117
  Transmission Date: 20160304
  Serious: Yes (Other)
  Sender: FDA-Public Use
  Company Number: 2015US003398

PATIENT
  Age: 51 Year
  Sex: Female

DRUGS (1)
  1. GLASSIA [Suspect]
     Active Substance: .ALPHA.1-PROTEINASE INHIBITOR HUMAN
     Indication: ALPHA-1 ANTI-TRYPSIN DEFICIENCY
     Dosage: WEEKLY, INTRAVENOUS
     Route: 042
     Dates: start: 20141108, end: 201502

REACTIONS (1)
  - Hospice care [None]

NARRATIVE: CASE EVENT DATE: 20150306
